FAERS Safety Report 14394680 (Version 7)
Quarter: 2019Q3

REPORT INFORMATION
  Report Type: Spontaneous
  Country: US (occurrence: US)
  Receive Date: 20180116
  Receipt Date: 20190814
  Transmission Date: 20191004
  Serious: Yes (Hospitalization, Other)
  Sender: FDA-Public Use
  Company Number: US-PFIZER INC-2017038995

PATIENT
  Age: 68 Year
  Sex: Female
  Weight: 52 kg

DRUGS (2)
  1. XELJANZ [Suspect]
     Active Substance: TOFACITINIB CITRATE
     Indication: RHEUMATOID ARTHRITIS
     Dosage: 5 MG, 2X/DAY
     Route: 048
     Dates: start: 2014
  2. XELJANZ [Suspect]
     Active Substance: TOFACITINIB CITRATE
     Dosage: 5 MG, 1X/DAY (5 MG PO QD, 30-DAY SUPPLY)
     Route: 048

REACTIONS (7)
  - Cerebrovascular accident [Unknown]
  - Gait disturbance [Unknown]
  - Malaise [Unknown]
  - Impaired healing [Unknown]
  - Myocardial infarction [Recovered/Resolved]
  - Pain [Not Recovered/Not Resolved]
  - Post procedural complication [Unknown]

NARRATIVE: CASE EVENT DATE: 2017
